FAERS Safety Report 17006347 (Version 1)
Quarter: 2019Q4

REPORT INFORMATION
  Report Type: Spontaneous
  Country: US (occurrence: US)
  Receive Date: 20191106
  Receipt Date: 20191106
  Transmission Date: 20200122
  Serious: Yes (Hospitalization)
  Sender: FDA-Public Use
  Company Number: None

PATIENT
  Age: 35 Year
  Sex: Male
  Weight: 65.25 kg

DRUGS (1)
  1. BENZEDREX [Suspect]
     Active Substance: PROPYLHEXEDRINE
     Indication: DEPENDENCE
     Dosage: ?          OTHER FREQUENCY:SEVERAL TIMES A MO;?
     Route: 055

REACTIONS (2)
  - Drug abuse [None]
  - Drug dependence [None]

NARRATIVE: CASE EVENT DATE: 19851001
